FAERS Safety Report 9213802 (Version 2)
Quarter: 2013Q4

REPORT INFORMATION
  Report Type: Spontaneous
  Country: US (occurrence: US)
  Receive Date: 20130405
  Receipt Date: 20131219
  Transmission Date: 20140711
  Serious: Yes (Other)
  Sender: FDA-Public Use
  Company Number: US-BAYER-2013-040316

PATIENT
  Age: 23 Year
  Sex: Female

DRUGS (4)
  1. YASMIN [Suspect]
     Dosage: UNK
     Route: 048
     Dates: start: 200906
  2. YAZ [Suspect]
     Dosage: UNK
     Route: 048
     Dates: start: 200906
  3. SULFAMETHOXAZOLE/TRIMETHOPRIM [Concomitant]
     Dosage: 800-160
  4. CYCLOBENZAPRINE [Concomitant]
     Dosage: 10 MG, UNK
     Dates: start: 20090225, end: 20090825

REACTIONS (6)
  - Gallbladder injury [None]
  - Pain [None]
  - Injury [None]
  - Pain [None]
  - Fear of disease [None]
  - Cholecystitis [None]
